FAERS Safety Report 6435004-0 (Version None)
Quarter: 2009Q4

REPORT INFORMATION
  Report Type: 
  Country: None (occurrence: None)
  Receive Date: 20091110
  Receipt Date: 20091027
  Transmission Date: 20100525
  Serious: Yes (Other)
  Sender: FDA-Public Use
  Company Number: PHHY2009JP22831

PATIENT
  Sex: Male

DRUGS (7)
  1. AMN107 AMN+CAP [Suspect]
     Indication: CHRONIC MYELOID LEUKAEMIA
     Dosage: 800 MG/DAY
     Route: 048
     Dates: start: 20090413, end: 20090427
  2. AMN107 AMN+CAP [Suspect]
     Dosage: 800 MG/DAY
     Route: 048
     Dates: start: 20090504, end: 20090527
  3. AMN107 AMN+CAP [Suspect]
     Dosage: 400 MG/DAY
     Route: 048
     Dates: start: 20090528, end: 20090603
  4. AMN107 AMN+CAP [Suspect]
     Dosage: 400 MG/DAY
     Route: 048
     Dates: start: 20090611, end: 20090702
  5. AMN107 AMN+CAP [Suspect]
     Dosage: 800 MG/DAY
     Route: 048
     Dates: start: 20090703, end: 20090723
  6. PREDONINE [Concomitant]
     Indication: CHRONIC MYELOID LEUKAEMIA
     Dosage: 10-15 MG
     Route: 048
     Dates: start: 20090313, end: 20090603
  7. FILDESIN [Concomitant]
     Indication: CHRONIC MYELOID LEUKAEMIA
     Dosage: 1 MG
     Route: 042
     Dates: start: 20090313

REACTIONS (4)
  - HAEMOGLOBIN DECREASED [None]
  - LEUKOPENIA [None]
  - MALIGNANT NEOPLASM PROGRESSION [None]
  - PLATELET COUNT DECREASED [None]
